FAERS Safety Report 6233228-9 (Version None)
Quarter: 2009Q2

REPORT INFORMATION
  Report Type: 
  Country: None (occurrence: None)
  Receive Date: 20090617
  Receipt Date: 20090609
  Transmission Date: 20091009
  Serious: Yes (Other)
  Sender: FDA-Public Use
  Company Number: PHHY2009AU22954

PATIENT
  Sex: Female

DRUGS (2)
  1. DIOVAN [Suspect]
     Indication: HYPERTENSION
     Dosage: 80 MG/DAY
     Route: 048
     Dates: start: 20090506
  2. DIOVAN [Suspect]
     Dosage: 160 MG/DAY
     Route: 048

REACTIONS (3)
  - CONSTIPATION [None]
  - DYSPNOEA [None]
  - URINARY TRACT INFECTION [None]
